FAERS Safety Report 6354084-4 (Version None)
Quarter: 2009Q3

REPORT INFORMATION
  Report Type: 
  Country: None (occurrence: None)
  Receive Date: 20090908
  Receipt Date: 20090826
  Transmission Date: 20100115
  Serious: Yes (Hospitalization, Disabling)
  Sender: FDA-Public Use
  Company Number: 20085899

PATIENT
  Sex: Female

DRUGS (1)
  1. LIORESAL [Suspect]
     Indication: MUSCLE SPASTICITY
     Dosage: DAILY, INTRATHECAL
     Route: 037

REACTIONS (7)
  - COGNITIVE DISORDER [None]
  - DRUG EFFECT INCREASED [None]
  - HYPERTONIA [None]
  - NAUSEA [None]
  - PAIN [None]
  - PARAPLEGIA [None]
  - WITHDRAWAL SYNDROME [None]
